FAERS Safety Report 8449907-9 (Version None)
Quarter: 2012Q2

REPORT INFORMATION
  Report Type: 
  Country: None (occurrence: None)
  Receive Date: 20120620
  Receipt Date: 20120612
  Transmission Date: 20120825
  Serious: Yes (Hospitalization, Other)
  Sender: FDA-Public Use
  Company Number: PHHY2012CA012410

PATIENT
  Sex: Female

DRUGS (1)
  1. SANDOSTATIN LAR [Suspect]
     Indication: CARCINOID TUMOUR
     Dosage: 30 MG, EVERY 4 WEEKS
     Route: 030
     Dates: start: 20120131

REACTIONS (9)
  - NEUROENDOCRINE CARCINOMA METASTATIC [None]
  - BLOOD GLUCOSE INCREASED [None]
  - NEOPLASM MALIGNANT [None]
  - DUODENAL STENOSIS [None]
  - PNEUMONIA [None]
  - MALAISE [None]
  - DECREASED APPETITE [None]
  - VOMITING [None]
  - INJECTION SITE PAIN [None]
